FAERS Safety Report 13233328 (Version 1)
Quarter: 2017Q1

REPORT INFORMATION
  Report Type: Spontaneous
  Country: CA (occurrence: CA)
  Receive Date: 20170215
  Receipt Date: 20170215
  Transmission Date: 20170428
  Serious: Yes (Disabling)
  Sender: FDA-Public Use
  Company Number: CA-TEVA-739186ACC

PATIENT
  Age: 29 Year
  Sex: Male
  Weight: 86.26 kg

DRUGS (2)
  1. NAPROXEN. [Suspect]
     Active Substance: NAPROXEN
     Indication: PAIN IN JAW
     Dosage: 1000 MILLIGRAM DAILY;
     Route: 048
  2. PRO-ZOPICLONE [Concomitant]

REACTIONS (2)
  - Ear pain [Not Recovered/Not Resolved]
  - Tinnitus [Not Recovered/Not Resolved]
